FAERS Safety Report 6361748-5 (Version None)
Quarter: 2009Q3

REPORT INFORMATION
  Report Type: 
  Country: None (occurrence: None)
  Receive Date: 20090918
  Receipt Date: 20090909
  Transmission Date: 20100115
  Serious: Yes (Other)
  Sender: FDA-Public Use
  Company Number: JP-ASTRAZENECA-2009SE12868

PATIENT
  Age: 74 Year
  Sex: Male

DRUGS (10)
  1. BLOPRESS [Suspect]
     Route: 048
  2. LEUPLIN [Suspect]
     Indication: PROSTATE CANCER
     Route: 058
     Dates: start: 20090708
  3. ODYNE [Suspect]
     Route: 048
  4. ACTOS [Concomitant]
     Route: 048
  5. EUGLUCON [Concomitant]
     Route: 048
  6. LIPOVAS [Concomitant]
     Route: 048
  7. BEZATOL SR [Concomitant]
     Route: 048
  8. MELBIN [Concomitant]
     Route: 048
  9. THEO-DUR [Concomitant]
     Route: 048
  10. MEDICON [Concomitant]
     Route: 048

REACTIONS (1)
  - INTERSTITIAL LUNG DISEASE [None]
